FAERS Safety Report 8358807 (Version 3)
Quarter: 2013Q2

REPORT INFORMATION
  Report Type: Spontaneous
  Country: US (occurrence: US)
  Receive Date: 20120127
  Receipt Date: 20120830
  Transmission Date: 20140414
  Serious: Yes (Death)
  Sender: FDA-Public Use
  Company Number: PHHY2011US37849

PATIENT
  Age: 57 Year
  Sex: Female

DRUGS (1)
  1. SANDOSTATIN LAR DEPOT [Suspect]
     Indication: CARCINOID SYNDROME

REACTIONS (2)
  - NEOPLASM MALIGNANT [Fatal]
  - INAPPROPRIATE SCHEDULE OF DRUG ADMINISTRATION [Unknown]
